FAERS Safety Report 12646884 (Version 1)
Quarter: 2016Q3

REPORT INFORMATION
  Report Type: Spontaneous
  Country: US (occurrence: None)
  Receive Date: 20160811
  Receipt Date: 20160811
  Transmission Date: 20161109
  Serious: Yes (Death, Other)
  Sender: FDA-Public Use
  Company Number: None

PATIENT
  Age: 53 Year
  Sex: Male
  Weight: 145.15 kg

DRUGS (6)
  1. OXYCODONE [Concomitant]
     Active Substance: OXYCODONE
  2. METOPROLOL. [Concomitant]
     Active Substance: METOPROLOL
  3. LISINOPRIL. [Concomitant]
     Active Substance: LISINOPRIL
  4. INVOKANA [Suspect]
     Active Substance: CANAGLIFLOZIN
     Indication: DIABETES MELLITUS
     Route: 048
     Dates: start: 20150917, end: 20160504
  5. TAMSULOSIN [Concomitant]
     Active Substance: TAMSULOSIN
  6. METFORMIN [Concomitant]
     Active Substance: METFORMIN HYDROCHLORIDE

REACTIONS (14)
  - Asthenia [None]
  - Chest pain [None]
  - Dysuria [None]
  - Fungal infection [None]
  - Bladder pain [None]
  - Renal pain [None]
  - Dyspnoea [None]
  - Abdominal distension [None]
  - Genital pain [None]
  - Penile pain [None]
  - Fatigue [None]
  - Pollakiuria [None]
  - Penile haemorrhage [None]
  - Genital infection [None]

NARRATIVE: CASE EVENT DATE: 20151026
